FAERS Safety Report 10511676 (Version 1)
Quarter: 2014Q4

REPORT INFORMATION
  Report Type: Spontaneous
  Country: VE (occurrence: VE)
  Receive Date: 20141010
  Receipt Date: 20141010
  Transmission Date: 20150528
  Serious: Yes (Hospitalization, Other)
  Sender: FDA-Public Use
  Company Number: PHHY2014VE129095

PATIENT
  Age: 53 Year
  Sex: Female

DRUGS (9)
  1. ONBREZ BREEZHALER [Suspect]
     Active Substance: INDACATEROL
     Dosage: 300 MG, DAILY
     Route: 055
  2. MIFLONIDE [Suspect]
     Active Substance: BUDESONIDE
     Dosage: 800 UG, DAILY, AFTER LEAVING HOSPITAL
     Route: 055
  3. ZOLOFT [Concomitant]
     Active Substance: SERTRALINE HYDROCHLORIDE
     Indication: DEPRESSION
     Dosage: 50 MG, UNK
     Dates: end: 20141001
  4. ONBREZ BREEZHALER [Suspect]
     Active Substance: INDACATEROL
     Indication: CHRONIC OBSTRUCTIVE PULMONARY DISEASE
     Dosage: 300 MG, DAILY, THREE YEARS AGO
     Route: 055
     Dates: end: 20140512
  5. MIFLONIDE [Suspect]
     Active Substance: BUDESONIDE
     Indication: CHRONIC OBSTRUCTIVE PULMONARY DISEASE
     Dosage: MIFLONIDE 200 UG WITH FORADIL STOPPPED 3 YEARS AGO
     Route: 055
  6. ESOMEPRAZOLE [Concomitant]
     Active Substance: ESOMEPRAZOLE
     Indication: GASTRITIS
     Dosage: 30 MG, UNK
     Route: 065
     Dates: end: 20141001
  7. MIFLONIDE [Suspect]
     Active Substance: BUDESONIDE
     Dosage: 800 UG, DAILY, THREE YEARS AGO
     Route: 055
     Dates: end: 20140512
  8. TILIUM [Concomitant]
     Indication: GASTROINTESTINAL DISORDER
     Dosage: 10 MG, TID
     Route: 065
     Dates: end: 20141001
  9. ONBREZ BREEZHALER [Suspect]
     Active Substance: INDACATEROL
     Dosage: 300 MG, DAILY, AFTER LEAVING HOSPITAL
     Route: 055

REACTIONS (4)
  - Foot fracture [Recovering/Resolving]
  - Pain in extremity [Recovering/Resolving]
  - Dyspnoea [Recovering/Resolving]
  - Asthmatic crisis [Recovering/Resolving]

NARRATIVE: CASE EVENT DATE: 20140717
